FAERS Safety Report 5639241-4 (Version None)
Quarter: 2008Q1

REPORT INFORMATION
  Report Type: 
  Country: None (occurrence: None)
  Receive Date: 20080226
  Receipt Date: 20080218
  Transmission Date: 20080703
  Serious: Yes (Other)
  Sender: FDA-Public Use
  Company Number: US-ELI_LILLY_AND_COMPANY-US200802004902

PATIENT
  Sex: Female
  Weight: 132.43 kg

DRUGS (15)
  1. BYETTA [Suspect]
     Dosage: 5 MG, 2/D
     Route: 058
     Dates: start: 20051001, end: 20051101
  2. BYETTA [Suspect]
     Dosage: 10 UG, 2/D
     Route: 058
     Dates: start: 20051101
  3. METFORMIN HCL [Concomitant]
     Dosage: 850 MG, 2/D
     Route: 048
     Dates: start: 20080213
  4. METFORMIN HCL [Concomitant]
     Dosage: 1000 MG, 2/D
     Route: 048
     Dates: start: 20071101, end: 20080212
  5. ANTI-DIABETICS [Concomitant]
     Dosage: 100 MG, 2/D
     Route: 048
     Dates: start: 20071101, end: 20080212
  6. CRESTOR [Concomitant]
     Indication: BLOOD CHOLESTEROL
     Dosage: 10 MG, DAILY (1/D)
     Dates: start: 20080213
  7. LYRICA [Concomitant]
     Indication: NEUROPATHY PERIPHERAL
     Dosage: 200 MG, 2/D
     Dates: start: 20051101
  8. PROTONIX [Concomitant]
     Indication: NAUSEA
     Dosage: 40 MG, DAILY (1/D)
     Route: 048
     Dates: start: 20040101
  9. SYNTHROID [Concomitant]
     Indication: HYPOTHYROIDISM
     Dosage: 50 UG, DAILY (1/D)
     Route: 048
     Dates: start: 19870101
  10. DARVOCET-N 100 [Concomitant]
     Indication: HEADACHE
     Dosage: 100 MG, AS NEEDED
     Route: 048
     Dates: start: 19870101
  11. IMITREX [Concomitant]
     Indication: MIGRAINE
     Dosage: 100 MG, AS NEEDED
     Route: 048
     Dates: start: 19940101
  12. IMITREX [Concomitant]
     Dosage: 6 MG, AS NEEDED
     Route: 058
     Dates: start: 20010101
  13. KENALOG [Concomitant]
     Indication: INJECTION SITE REACTION
     Dosage: 0.1 %, AS NEEDED
     Route: 061
     Dates: start: 20050101
  14. BENADRYL [Concomitant]
     Indication: INJECTION SITE REACTION
     Dosage: UNK, AS NEEDED
     Route: 061
     Dates: start: 20050101
  15. IBUPROFEN [Concomitant]
     Indication: MIGRAINE
     Dosage: UNK, DAILY (1/D)
     Route: 048

REACTIONS (8)
  - COLITIS [None]
  - DYSPEPSIA [None]
  - GLYCOSYLATED HAEMOGLOBIN INCREASED [None]
  - HYPERTENSION [None]
  - HYSTERECTOMY [None]
  - INSOMNIA [None]
  - MIGRAINE [None]
  - NAUSEA [None]
